FAERS Safety Report 4766409-1 (Version None)
Quarter: 2005Q3

REPORT INFORMATION
  Report Type: 
  Country: None (occurrence: None)
  Receive Date: 20050912
  Receipt Date: 20050829
  Transmission Date: 20060218
  Serious: Yes (Hospitalization)
  Sender: FDA-Public Use
  Company Number: SE-JNJFOC-20050900012

PATIENT
  Age: 46 Year
  Sex: Female

DRUGS (5)
  1. TOPIMAX [Suspect]
     Indication: MIGRAINE PROPHYLAXIS
     Route: 048
  2. MAXALT [Suspect]
     Indication: MIGRAINE
     Route: 048
  3. ETORICOXIB [Suspect]
     Indication: FIBROMYALGIA
     Route: 048
  4. CIPRALEX [Concomitant]
     Route: 065
  5. TRYPTIZOL [Concomitant]
     Route: 065

REACTIONS (1)
  - MYOCARDIAL INFARCTION [None]
